FAERS Safety Report 14745850 (Version 4)
Quarter: 2018Q3

REPORT INFORMATION
  Report Type: Spontaneous
  Country: JP (occurrence: JP)
  Receive Date: 20180411
  Receipt Date: 20180725
  Transmission Date: 20181010
  Serious: Yes (Disabling)
  Sender: FDA-Public Use
  Company Number: PHJP2018JP008045

PATIENT
  Age: 80 Year
  Sex: Female
  Weight: 50.9 kg

DRUGS (7)
  1. ANFLAVATE [Concomitant]
     Active Substance: BETAMETHASONE BUTYRATE PROPIONATE
     Indication: PSORIASIS
     Dosage: 0.5 G, BID
     Route: 061
     Dates: end: 20180328
  2. COSENTYX [Suspect]
     Active Substance: SECUKINUMAB
     Indication: PSORIASIS
     Dosage: 300 MG, QW
     Route: 058
     Dates: start: 20170302, end: 20170330
  3. AMLODIPINE [Concomitant]
     Active Substance: AMLODIPINE BESYLATE
     Indication: HYPERTENSION
     Dosage: 5 MG, QD
     Route: 048
     Dates: start: 20180118, end: 20180328
  4. COSENTYX [Suspect]
     Active Substance: SECUKINUMAB
     Dosage: 300 MG, QMO
     Route: 058
     Dates: start: 20170427, end: 20180322
  5. MAGMITT [Concomitant]
     Active Substance: MAGNESIUM OXIDE
     Indication: CONSTIPATION
     Dosage: 330 MG, BID
     Route: 048
     Dates: start: 20131120, end: 20180328
  6. ANFLAVATE [Concomitant]
     Active Substance: BETAMETHASONE BUTYRATE PROPIONATE
     Indication: PSORIASIS
     Dosage: 1 G, BID
     Route: 061
     Dates: end: 20180328
  7. OXAROL [Concomitant]
     Active Substance: MAXACALCITOL
     Indication: PSORIASIS
     Dosage: 0.5 G, BID
     Route: 061
     Dates: end: 20180328

REACTIONS (8)
  - Basal ganglia infarction [Recovered/Resolved with Sequelae]
  - Hemiparesis [Unknown]
  - Fall [Recovered/Resolved with Sequelae]
  - Dyslalia [Recovered/Resolved with Sequelae]
  - Asthenia [Recovered/Resolved with Sequelae]
  - Thrombotic cerebral infarction [Not Recovered/Not Resolved]
  - Contusion [Unknown]
  - Gait disturbance [Recovered/Resolved with Sequelae]

NARRATIVE: CASE EVENT DATE: 20180327
